FAERS Safety Report 5373132-1 (Version None)
Quarter: 2007Q2

REPORT INFORMATION
  Report Type: 
  Country: None (occurrence: None)
  Receive Date: 20070627
  Receipt Date: 20070621
  Transmission Date: 20071010
  Serious: Yes (Other)
  Sender: FDA-Public Use
  Company Number: US-PFIZER INC-2007051315

PATIENT
  Sex: Female
  Weight: 67.272 kg

DRUGS (3)
  1. CELEBREX [Suspect]
     Indication: PAIN
  2. ANTIHYPERTENSIVES [Concomitant]
  3. CHOLESTEROL- AND TRIGLYCERIDE REDUCERS [Concomitant]

REACTIONS (2)
  - CARDIAC MURMUR [None]
  - NASAL OPERATION [None]
